FAERS Safety Report 10067077 (Version 2)
Quarter: 2014Q2

REPORT INFORMATION
  Report Type: Spontaneous
  Country: CA (occurrence: CA)
  Receive Date: 20140409
  Receipt Date: 20140520
  Transmission Date: 20141212
  Serious: Yes (Hospitalization, Other)
  Sender: FDA-Public Use
  Company Number: CA-AMGEN-CANSP2014024034

PATIENT
  Age: 69 Year
  Sex: Female

DRUGS (3)
  1. PROLIA [Suspect]
     Indication: OSTEOPOROSIS POSTMENOPAUSAL
     Dosage: 60 MG, Q6MO
     Route: 058
     Dates: start: 20130430
  2. VITAMIN D                          /00107901/ [Concomitant]
  3. CALCIUM [Concomitant]

REACTIONS (11)
  - Blood pressure increased [Recovering/Resolving]
  - Dyspnoea [Recovering/Resolving]
  - Dizziness [Unknown]
  - Vertigo [Unknown]
  - Palpitations [Recovered/Resolved]
  - Sleep disorder due to general medical condition, insomnia type [Unknown]
  - Arthralgia [Unknown]
  - Back pain [Recovered/Resolved]
  - Bone pain [Unknown]
  - Mobility decreased [Unknown]
  - Pain in extremity [Unknown]
